FAERS Safety Report 9300395 (Version 1)
Quarter: 2012Q4

REPORT INFORMATION
  Report Type: Spontaneous
  Country: US (occurrence: None)
  Receive Date: 20121109
  Receipt Date: 20121109
  Transmission Date: 20130627
  Serious: Yes (Other)
  Sender: FDA-Public Use
  Company Number: 2011S1000800

PATIENT
  Age: 54 Year
  Sex: Male

DRUGS (7)
  1. CUBICIN [Suspect]
     Indication: OSTEOMYELITIS
     Dates: start: 20110927
  2. LIPITOR [Concomitant]
  3. ROCEPHIN [Concomitant]
  4. AVANDIA [Concomitant]
  5. LISINOPRIL [Concomitant]
  6. GLIPIZIDE [Concomitant]
  7. FISH OIL [Concomitant]

REACTIONS (3)
  - Renal impairment [None]
  - Blood potassium increased [None]
  - Blood creatine phosphokinase increased [None]
